FAERS Safety Report 22383318 (Version 2)
Quarter: 2023Q2

REPORT INFORMATION
  Report Type: Spontaneous
  Country: FR (occurrence: FR)
  Receive Date: 20230530
  Receipt Date: 20230627
  Transmission Date: 20230722
  Serious: Yes (Other)
  Sender: FDA-Public Use
  Company Number: FR-BAYER-2023A074111

PATIENT
  Sex: Male

DRUGS (1)
  1. EYLEA [Suspect]
     Active Substance: AFLIBERCEPT
     Indication: Age-related macular degeneration
     Dosage: UNK, 40MG/ML, SOLUTION FOR INJECTION
     Route: 031
     Dates: start: 20230502, end: 20230502

REACTIONS (2)
  - Macular hole [Recovering/Resolving]
  - Visual impairment [Unknown]
